FAERS Safety Report 13392128 (Version 1)
Quarter: 2017Q1

REPORT INFORMATION
  Report Type: Report from Study
  Country: CO (occurrence: CO)
  Receive Date: 20170331
  Receipt Date: 20170331
  Transmission Date: 20170429
  Serious: Yes (Hospitalization)
  Sender: FDA-Public Use
  Company Number: PHHY2017CO045925

PATIENT
  Age: 75 Year
  Sex: Female
  Weight: 50 kg

DRUGS (2)
  1. REVOLADE [Suspect]
     Active Substance: ELTROMBOPAG
     Indication: MYELODYSPLASTIC SYNDROME
  2. REVOLADE [Suspect]
     Active Substance: ELTROMBOPAG
     Indication: IMMUNE THROMBOCYTOPENIC PURPURA
     Dosage: 12 DF, QD (300 MG DAILY)
     Route: 048
     Dates: start: 20170227

REACTIONS (8)
  - Glossodynia [Unknown]
  - Dizziness [Unknown]
  - Tension [Unknown]
  - Platelet count decreased [Unknown]
  - Product use issue [Unknown]
  - Asthenia [Unknown]
  - Oral disorder [Unknown]
  - Overdose [Unknown]

NARRATIVE: CASE EVENT DATE: 20170321
